FAERS Safety Report 7384254-8 (Version None)
Quarter: 2011Q1

REPORT INFORMATION
  Report Type: 
  Country: None (occurrence: None)
  Receive Date: 20110330
  Receipt Date: 20110315
  Transmission Date: 20110831
  Serious: Yes (Hospitalization, Other)
  Sender: FDA-Public Use
  Company Number: US-BAYER-201040972NA

PATIENT
  Sex: Female
  Weight: 112 kg

DRUGS (12)
  1. CLONIDINE [Concomitant]
  2. UNCODEABLE ^UNCLASSIFIABLE^ [Concomitant]
  3. CIPRO [Concomitant]
  4. HYDROCHLOROTHIAZIDE [Concomitant]
  5. AMARYL [Concomitant]
  6. SIMVASTATIN [Concomitant]
     Indication: BLOOD CHOLESTEROL INCREASED
     Dosage: UNK
     Dates: start: 20070101
  7. YASMIN [Suspect]
     Indication: ORAL CONTRACEPTION
     Route: 048
     Dates: start: 20021201, end: 20080101
  8. ZESTRIL [Concomitant]
  9. ZOCOR [Concomitant]
  10. NPH INSULIN [Concomitant]
  11. FLAGYL [Concomitant]
  12. LISINOPRIL [Concomitant]
     Indication: HYPERTENSION
     Dosage: UNK
     Dates: start: 20070101

REACTIONS (2)
  - CHOLELITHIASIS [None]
  - ABDOMINAL PAIN [None]
